FAERS Safety Report 22264735 (Version 2)
Quarter: 2023Q2

REPORT INFORMATION
  Report Type: Spontaneous
  Country: US (occurrence: None)
  Receive Date: 20230428
  Receipt Date: 20230428
  Transmission Date: 20230721
  Serious: No
  Sender: FDA-Public Use
  Company Number: 2022A275905

PATIENT

DRUGS (5)
  1. DURVALUMAB [Suspect]
     Active Substance: DURVALUMAB
     Route: 042
  2. DOCETAXEL [Suspect]
     Active Substance: DOCETAXEL
     Route: 065
  3. FLUOROURACIL [Suspect]
     Active Substance: FLUOROURACIL
  4. LEUCOVORIN [Suspect]
     Active Substance: LEUCOVORIN
  5. OXALIPLATIN [Suspect]
     Active Substance: OXALIPLATIN

REACTIONS (1)
  - Diarrhoea [Unknown]
